FAERS Safety Report 5466661-3 (Version None)
Quarter: 2007Q3

REPORT INFORMATION
  Report Type: 
  Country: None (occurrence: None)
  Receive Date: 20070921
  Receipt Date: 20070921
  Transmission Date: 20080115
  Serious: No
  Sender: FDA-Public Use
  Company Number: None

PATIENT
  Sex: Female

DRUGS (1)
  1. OXYCODONE - ^NON-WATSON^ [Suspect]
     Dosage: 30 1 QAM

REACTIONS (1)
  - PHARMACEUTICAL PRODUCT COMPLAINT [None]
